FAERS Safety Report 8747072 (Version 3)
Quarter: 2013Q3

REPORT INFORMATION
  Report Type: Report from Study
  Country: JP (occurrence: JP)
  Receive Date: 20120827
  Receipt Date: 20130719
  Transmission Date: 20140515
  Serious: Yes (Hospitalization, Other)
  Sender: FDA-Public Use
  Company Number: JP-009507513-2012SP018294

PATIENT
  Age: 64 Year
  Sex: Female
  Weight: 43 kg

DRUGS (15)
  1. PEGINTRON [Suspect]
     Indication: CHRONIC HEPATITIS C
     Dosage: 1.5 MICROGRAM PER KILOGRAM, QW
     Route: 058
     Dates: start: 20120131
  2. REBETOL [Suspect]
     Indication: CHRONIC HEPATITIS C
     Dosage: 400 MG, QD
     Route: 048
     Dates: start: 20120131, end: 20120227
  3. REBETOL [Suspect]
     Dosage: 200 MG, QD
     Route: 048
     Dates: start: 20120228, end: 20120317
  4. REBETOL [Suspect]
     Dosage: 200 MG, QD
     Route: 048
     Dates: start: 20120321, end: 20120403
  5. REBETOL [Suspect]
     Dosage: 300 MG, QD
     Route: 048
     Dates: start: 20120404, end: 20120423
  6. REBETOL [Suspect]
     Dosage: 400 MG, QD
     Route: 048
     Dates: start: 20120424, end: 20120521
  7. REBETOL [Suspect]
     Dosage: 500 MG, QD
     Route: 048
     Dates: start: 20120522, end: 20120717
  8. TELAVIC [Suspect]
     Indication: CHRONIC HEPATITIS C
     Dosage: 1500 MG, QD
     Route: 048
     Dates: start: 20120131, end: 20120316
  9. ALLOPURINOL [Suspect]
     Indication: ADVERSE EVENT
     Dosage: 200 MG, QD, FOR-POR
     Route: 048
     Dates: start: 20120204, end: 20120314
  10. ALLOPURINOL [Suspect]
     Indication: PROPHYLAXIS
     Dosage: 200 MG, QD, FOR-POR
     Route: 048
     Dates: start: 20120316, end: 20120319
  11. NITOROL [Concomitant]
     Indication: PROPHYLAXIS
     Dosage: 20 MG, QD, FORMULATION: POR
     Route: 048
  12. NITOROL [Concomitant]
     Dosage: 40 MG, QD, FORMULATION: POR
     Route: 048
     Dates: start: 20120501
  13. CONIEL [Concomitant]
     Indication: PROPHYLAXIS
     Dosage: 40 MG, QD, FOR-POR
     Route: 048
  14. CONIEL [Concomitant]
     Dosage: 4 MG, QD, FOR-POR
     Route: 048
  15. FAMOTIDINE [Concomitant]
     Indication: PROPHYLAXIS
     Dosage: 40 MG, QD, FOR-POR
     Route: 048
     Dates: start: 20120501

REACTIONS (4)
  - Anaemia [Not Recovered/Not Resolved]
  - Blood urea increased [Recovering/Resolving]
  - Anaemia [Not Recovered/Not Resolved]
  - Rash [Recovering/Resolving]
